FAERS Safety Report 10057056 (Version 1)
Quarter: 2014Q2

REPORT INFORMATION
  Report Type: Spontaneous
  Country: GB (occurrence: GB)
  Receive Date: 20140403
  Receipt Date: 20140403
  Transmission Date: 20141212
  Serious: Yes (Disabling, Other)
  Sender: FDA-Public Use
  Company Number: GB-PFIZER INC-2014093138

PATIENT
  Age: 71 Year
  Sex: Female

DRUGS (3)
  1. CIPROFLOXACIN [Suspect]
     Dosage: UNK
     Route: 048
  2. METRONIDAZOLE [Suspect]
     Dosage: UNK
     Route: 048
  3. RIFAXIMIN [Suspect]
     Dosage: UNK
     Route: 048

REACTIONS (1)
  - Deafness [Unknown]
